FAERS Safety Report 6197453-8 (Version None)
Quarter: 2009Q2

REPORT INFORMATION
  Report Type: 
  Country: None (occurrence: None)
  Receive Date: 20090521
  Receipt Date: 20090227
  Transmission Date: 20091009
  Serious: No
  Sender: FDA-Public Use
  Company Number: US-TEVA-187289USA

PATIENT
  Age: 65 Year
  Sex: Female

DRUGS (1)
  1. AZILECT [Suspect]
     Route: 048

REACTIONS (2)
  - ABDOMINAL DISCOMFORT [None]
  - DIZZINESS [None]
